FAERS Safety Report 4926914-1 (Version None)
Quarter: 2006Q1

REPORT INFORMATION
  Report Type: 
  Country: None (occurrence: None)
  Receive Date: 20060228
  Receipt Date: 20050908
  Transmission Date: 20060701
  Serious: No
  Sender: FDA-Public Use
  Company Number: US-GLAXOSMITHKLINE-A0573506A

PATIENT
  Age: 39 Year
  Sex: Male

DRUGS (4)
  1. LAMICTAL [Suspect]
     Indication: BIPOLAR DISORDER
     Dosage: 150MG PER DAY
     Route: 048
     Dates: start: 20050418
  2. VICODIN [Concomitant]
  3. AMBIEN [Concomitant]
  4. ATIVAN [Concomitant]

REACTIONS (1)
  - PLATELET COUNT INCREASED [None]
